FAERS Safety Report 7946429-6 (Version None)
Quarter: 2011Q4

REPORT INFORMATION
  Report Type: 
  Country: None (occurrence: None)
  Receive Date: 20111129
  Receipt Date: 20111118
  Transmission Date: 20120403
  Serious: Yes (Other)
  Sender: FDA-Public Use
  Company Number: US-BAYER-201035021NA

PATIENT
  Age: 26 Year
  Sex: Female
  Weight: 52.154 kg

DRUGS (5)
  1. YAZ [Suspect]
     Dosage: UNK
     Dates: start: 20061001, end: 20070301
  2. YAZ [Suspect]
     Dosage: UNK
     Dates: start: 20091201, end: 20091201
  3. YAZ [Suspect]
     Dosage: UNK
     Dates: start: 20080701, end: 20090101
  4. AMOXICILLIN [Concomitant]
     Dosage: UNK
     Dates: start: 20070401
  5. FLUCONAZOLE [Concomitant]
     Dosage: UNK
     Dates: start: 20070401

REACTIONS (10)
  - FLATULENCE [None]
  - DYSPEPSIA [None]
  - DIARRHOEA [None]
  - ANXIETY [None]
  - ABDOMINAL DISTENSION [None]
  - CONSTIPATION [None]
  - CHOLECYSTITIS CHRONIC [None]
  - SCAR [None]
  - CHOLECYSTECTOMY [None]
  - DEPRESSION [None]
